FAERS Safety Report 19396784 (Version 1)
Quarter: 2021Q2

REPORT INFORMATION
  Report Type: Spontaneous
  Country: US (occurrence: US)
  Receive Date: 20210609
  Receipt Date: 20210609
  Transmission Date: 20210717
  Serious: Yes (Other)
  Sender: FDA-Public Use
  Company Number: US-LUNDBECK-DKLU3034033

PATIENT
  Age: 7 Year
  Sex: Female
  Weight: 17.5 kg

DRUGS (8)
  1. SABRIL [Suspect]
     Active Substance: VIGABATRIN
     Indication: LENNOX-GASTAUT SYNDROME
     Route: 048
  2. SABRIL [Suspect]
     Active Substance: VIGABATRIN
     Indication: SEIZURE
  3. SABRIL [Suspect]
     Active Substance: VIGABATRIN
     Indication: INFANTILE SPASMS
     Route: 048
  4. SABRIL [Suspect]
     Active Substance: VIGABATRIN
     Indication: CONGENITAL CENTRAL NERVOUS SYSTEM ANOMALY
  5. EPIDIOLEX [Concomitant]
     Active Substance: CANNABIDIOL
     Indication: PRODUCT USED FOR UNKNOWN INDICATION
     Route: 065
  6. SABRIL [Suspect]
     Active Substance: VIGABATRIN
     Indication: GENERAL PHYSICAL HEALTH DETERIORATION
  7. SABRIL [Suspect]
     Active Substance: VIGABATRIN
     Indication: ENCEPHALITIS
  8. SABRIL [Suspect]
     Active Substance: VIGABATRIN
     Indication: ENCEPHALOMYELITIS

REACTIONS (2)
  - Product dose omission issue [Unknown]
  - Drug withdrawal convulsions [Unknown]
